FAERS Safety Report 5886732-7 (Version None)
Quarter: 2008Q3

REPORT INFORMATION
  Report Type: 
  Country: None (occurrence: None)
  Receive Date: 20080917
  Receipt Date: 20080917
  Transmission Date: 20090109
  Serious: Yes (Hospitalization, Disabling)
  Sender: FDA-Public Use
  Company Number: PHHO2000ES03389

PATIENT
  Sex: Male
  Weight: 86 kg

DRUGS (3)
  1. NEORAL [Suspect]
     Route: 048
     Dates: start: 20000421, end: 20000624
  2. SEPTRIN [Interacting]
     Dates: start: 20000522, end: 20000703
  3. RAD 666 RAD+ [Suspect]
     Dosage: 1.5 MG, BID
     Route: 048
     Dates: start: 20000422

REACTIONS (2)
  - DRUG INTERACTION [None]
  - HAEMOLYTIC URAEMIC SYNDROME [None]
